FAERS Safety Report 8923613 (Version 1)
Quarter: 2012Q4

REPORT INFORMATION
  Report Type: Spontaneous
  Country: JP (occurrence: None)
  Receive Date: 20121115
  Receipt Date: 20121115
  Transmission Date: 20130627
  Serious: Yes (Other)
  Sender: FDA-Public Use
  Company Number: JP-20120061

PATIENT
  Age: 75 Year
  Sex: Male

DRUGS (5)
  1. LIPIODOL ULTRA FLUIDE (ETHIODIZED OIL) [Suspect]
     Indication: CHEMOEMBOLISATION
     Route: 013
     Dates: start: 20080624, end: 20080624
  2. LIPIODOL ULTRA FLUIDE (ETHIODIZED OIL) [Suspect]
     Route: 013
     Dates: start: 20080624, end: 20080624
  3. CISPLATIN [Suspect]
     Indication: CHEMOEMBOLISATION
     Route: 013
     Dates: start: 20080624, end: 20080624
  4. FARMORUBICIN [Suspect]
     Indication: CHEMOEMBOLISATION
     Route: 013
     Dates: start: 20080624, end: 20080624
  5. GELPART [Suspect]
     Indication: CHEMOEMBOLISATION
     Route: 013
     Dates: start: 20080624, end: 20080624

REACTIONS (3)
  - Biloma [None]
  - Bile duct stone [None]
  - Off label use [None]
